FAERS Safety Report 8139905-7 (Version None)
Quarter: 2012Q1

REPORT INFORMATION
  Report Type: 
  Country: None (occurrence: None)
  Receive Date: 20120215
  Receipt Date: 20120213
  Transmission Date: 20120608
  Serious: Yes (Life-Threatening, Hospitalization)
  Sender: FDA-Public Use
  Company Number: DE-ROCHE-1022197

PATIENT
  Sex: Female

DRUGS (3)
  1. ARAVA [Concomitant]
     Indication: RHEUMATOID ARTHRITIS
     Route: 048
     Dates: start: 20101028
  2. ALENDRON [Concomitant]
     Indication: OSTEOPOROSIS
  3. ACTEMRA [Suspect]
     Indication: PRODUCT USED FOR UNKNOWN INDICATION
     Route: 065

REACTIONS (4)
  - CARDIAC ARREST [None]
  - UROSEPSIS [None]
  - RENAL ABSCESS [None]
  - SEPTIC SHOCK [None]
